FAERS Safety Report 20147960 (Version 6)
Quarter: 2022Q1

REPORT INFORMATION
  Report Type: Report from Study
  Country: DE (occurrence: DE)
  Receive Date: 20211204
  Receipt Date: 20220310
  Transmission Date: 20220423
  Serious: Yes (Other)
  Sender: FDA-Public Use
  Company Number: DE-BRISTOL-MYERS SQUIBB COMPANY-BMS-2021-043239

PATIENT
  Age: 51 Year
  Sex: Male

DRUGS (13)
  1. NIVOLUMAB [Suspect]
     Active Substance: NIVOLUMAB
     Indication: Renal cell carcinoma
     Dosage: 282 MILLIGRAM, Q3WK
     Route: 042
     Dates: start: 20210318, end: 20210318
  2. NIVOLUMAB [Suspect]
     Active Substance: NIVOLUMAB
     Dosage: 240 MILLIGRAM, Q3WK
     Route: 042
     Dates: start: 20210429, end: 20210429
  3. NIVOLUMAB [Suspect]
     Active Substance: NIVOLUMAB
     Dosage: 291 MILLIGRAM, Q3WK
     Route: 042
     Dates: start: 20210520, end: 20210520
  4. NIVOLUMAB [Suspect]
     Active Substance: NIVOLUMAB
     Dosage: 300 MILLIGRAM, Q3WK
     Route: 042
     Dates: start: 20210608, end: 20210608
  5. NIVOLUMAB [Suspect]
     Active Substance: NIVOLUMAB
     Dosage: 303 MILLIGRAM, Q3WK
     Route: 042
     Dates: start: 20210701, end: 20210701
  6. NIVOLUMAB [Suspect]
     Active Substance: NIVOLUMAB
     Dosage: 303 MILLIGRAM, Q3WK
     Route: 042
     Dates: start: 20210722, end: 20210722
  7. NIVOLUMAB [Suspect]
     Active Substance: NIVOLUMAB
     Dosage: 240 MILLIGRAM, Q2WK
     Route: 042
     Dates: start: 20210923, end: 20211117
  8. NIVOLUMAB [Suspect]
     Active Substance: NIVOLUMAB
     Dosage: 240 MILLIGRAM, Q2WK (CONTINUATION PLANNED IN BI-WEEKLY RHYTHM)
     Route: 042
     Dates: start: 20220105
  9. IPILIMUMAB [Suspect]
     Active Substance: IPILIMUMAB
     Indication: Renal cell carcinoma
     Dosage: 94 MILLIGRAM, Q3WK
     Route: 042
     Dates: start: 20210318, end: 20210318
  10. IPILIMUMAB [Suspect]
     Active Substance: IPILIMUMAB
     Dosage: 1 MILLIGRAM, Q3WK
     Route: 042
     Dates: start: 20210429, end: 20210429
  11. IPILIMUMAB [Suspect]
     Active Substance: IPILIMUMAB
     Dosage: 97 MILLIGRAM, Q3WK
     Route: 042
     Dates: start: 20210520, end: 20210520
  12. IPILIMUMAB [Suspect]
     Active Substance: IPILIMUMAB
     Dosage: 100 MILLIGRAM, Q3WK
     Route: 042
     Dates: start: 20210608, end: 20210608
  13. IPILIMUMAB [Suspect]
     Active Substance: IPILIMUMAB
     Dosage: 101 MILLIGRAM, Q3WK
     Route: 042
     Dates: start: 20210701, end: 20210701

REACTIONS (13)
  - Acute kidney injury [Recovered/Resolved]
  - Sepsis [Unknown]
  - General physical health deterioration [Recovered/Resolved]
  - White blood cell count increased [Recovered/Resolved]
  - Haemoglobin decreased [Not Recovered/Not Resolved]
  - C-reactive protein increased [Recovered/Resolved]
  - Blood creatinine increased [Recovered/Resolved]
  - Blood sodium decreased [Not Recovered/Not Resolved]
  - Blood calcium increased [Not Recovered/Not Resolved]
  - Blood thyroid stimulating hormone increased [Not Recovered/Not Resolved]
  - Blood thyroid stimulating hormone decreased [Recovered/Resolved]
  - Pruritus [Recovered/Resolved]
  - Intentional product use issue [Unknown]

NARRATIVE: CASE EVENT DATE: 20210318
